FAERS Safety Report 8612246-7 (Version None)
Quarter: 2012Q3

REPORT INFORMATION
  Report Type: 
  Country: None (occurrence: None)
  Receive Date: 20120822
  Receipt Date: 20120814
  Transmission Date: 20120928
  Serious: Yes (Death, Hospitalization, Other)
  Sender: FDA-Public Use
  Company Number: US-BAYER-200912872NA

PATIENT
  Age: 69 Year
  Sex: Male
  Weight: 81.633 kg

DRUGS (21)
  1. PEPCID [Concomitant]
     Dosage: 20 MG, UNK
     Route: 042
     Dates: start: 20031126
  2. HEPARIN [Concomitant]
     Dosage: 45 U, UNK
     Route: 042
     Dates: start: 20031126
  3. CEFAZOLIN [Concomitant]
     Dosage: 2 MG, UNK
     Route: 042
     Dates: start: 20031126
  4. TRASYLOL [Suspect]
     Indication: CORONARY ARTERY BYPASS
     Dosage: 200ML LOADING DOSE
     Route: 042
     Dates: start: 20031126
  5. TRASYLOL [Suspect]
     Indication: MITRAL VALVE REPLACEMENT
     Dosage: 50ML/HOUR INFUSION
     Route: 042
     Dates: end: 20031126
  6. ANTIBIOTICS [Concomitant]
  7. FENTANYL [Concomitant]
     Dosage: 4 MG, UNK
     Route: 042
     Dates: start: 20031126
  8. VECURONIUM BROMIDE [Concomitant]
     Dosage: 10 MG, UNK
     Route: 042
     Dates: start: 20031126
  9. NADOLOL [Concomitant]
     Dosage: 120 MG, UNK
     Route: 048
     Dates: start: 19990101
  10. VANCOMYCIN [Concomitant]
  11. FLAGYL [Concomitant]
  12. PRAVACHOL [Concomitant]
     Dosage: UNK
     Route: 048
     Dates: start: 20030101
  13. CIPROFLOXACIN [Concomitant]
  14. MIDAZOLAM [Concomitant]
     Dosage: 5 MG, UNK
     Route: 042
     Dates: start: 20031126
  15. LEVAQUIN [Concomitant]
     Dosage: 500 MG, UNK
     Route: 042
     Dates: start: 20031126
  16. FRESH FROZEN PLASMA [Concomitant]
     Dosage: 2 U, UNK
     Dates: start: 20031126
  17. KETAMINE HCL [Concomitant]
     Dosage: 50 MG, UNK
     Route: 042
     Dates: start: 20031126
  18. CALCIUM CHLORIDE [Concomitant]
     Dosage: 5 G, UNK
     Route: 042
     Dates: start: 20031126
  19. AMIODARONE HCL [Concomitant]
     Dosage: UNK
     Route: 042
     Dates: start: 20031126
  20. ENALAPRIL MALEATE [Concomitant]
     Dosage: 10/25 MG
     Route: 048
     Dates: start: 19990101
  21. VIOXX [Concomitant]
     Dosage: 25 MG, UNK
     Route: 048
     Dates: start: 20000101

REACTIONS (14)
  - UNEVALUABLE EVENT [None]
  - PAIN [None]
  - FEAR [None]
  - ARTERIAL OCCLUSIVE DISEASE [None]
  - DEATH [None]
  - EMOTIONAL DISTRESS [None]
  - STRESS [None]
  - ANHEDONIA [None]
  - RENAL INJURY [None]
  - ANXIETY [None]
  - INJURY [None]
  - RENAL FAILURE [None]
  - RENAL IMPAIRMENT [None]
  - MITRAL VALVE INCOMPETENCE [None]
